FAERS Safety Report 5535314-5 (Version None)
Quarter: 2007Q4

REPORT INFORMATION
  Report Type: 
  Country: None (occurrence: None)
  Receive Date: 20071204
  Receipt Date: 20071204
  Transmission Date: 20080405
  Serious: Yes (Death)
  Sender: FDA-Public Use
  Company Number: None

PATIENT
  Age: 19 Year
  Sex: Male
  Weight: 54.4316 kg

DRUGS (1)
  1. METHADONE HCL [Suspect]

REACTIONS (1)
  - NO ADVERSE DRUG REACTION [None]
